FAERS Safety Report 23816957 (Version 1)
Quarter: 2024Q2

REPORT INFORMATION
  Report Type: Spontaneous
  Country: FR (occurrence: FR)
  Receive Date: 20240504
  Receipt Date: 20240504
  Transmission Date: 20240715
  Serious: Yes (Hospitalization)
  Sender: FDA-Public Use
  Company Number: None

PATIENT
  Age: 81 Year
  Sex: Male

DRUGS (1)
  1. EXJADE [Suspect]
     Active Substance: DEFERASIROX
     Indication: Myelodysplastic syndrome with ringed sideroblasts
     Dosage: 3 DOSAGE FORM, QD
     Route: 048
     Dates: start: 20240213, end: 20240315

REACTIONS (2)
  - Acute kidney injury [Recovering/Resolving]
  - Mixed liver injury [Recovering/Resolving]

NARRATIVE: CASE EVENT DATE: 20240315
